FAERS Safety Report 16172303 (Version 3)
Quarter: 2019Q2

REPORT INFORMATION
  Report Type: Spontaneous
  Country: US (occurrence: US)
  Receive Date: 20190409
  Receipt Date: 20190625
  Transmission Date: 20190711
  Serious: No
  Sender: FDA-Public Use
  Company Number: US-BRISTOL-MYERS SQUIBB COMPANY-BMS-2019-034670

PATIENT
  Sex: Female

DRUGS (1)
  1. SPRYCEL [Suspect]
     Active Substance: DASATINIB
     Indication: CHRONIC MYELOID LEUKAEMIA
     Dosage: 140 MILLIGRAM, QD (70MG,TAKE 2 TABLETS (140 MG TOTAL BY MOUTH DAILY)
     Route: 048
     Dates: start: 201903

REACTIONS (3)
  - Pain [Unknown]
  - Vomiting [Unknown]
  - Nausea [Unknown]
